FAERS Safety Report 25156785 (Version 1)
Quarter: 2025Q2

REPORT INFORMATION
  Report Type: Spontaneous
  Country: GB (occurrence: GB)
  Receive Date: 20250403
  Receipt Date: 20250403
  Transmission Date: 20250716
  Serious: Yes (Other)
  Sender: GLAXOSMITHKLINE
  Company Number: None

PATIENT

DRUGS (1)
  1. MEPOLIZUMAB [Suspect]
     Active Substance: MEPOLIZUMAB
     Indication: Asthma
     Dosage: 100MG EVERY 28 DAYS(1 DF Q4W
     Route: 065
     Dates: end: 20250325

REACTIONS (2)
  - Lymphoedema [Recovering/Resolving]
  - Anaemia [Recovering/Resolving]
